FAERS Safety Report 7466136-6 (Version None)
Quarter: 2011Q2

REPORT INFORMATION
  Report Type: 
  Country: None (occurrence: None)
  Receive Date: 20110509
  Receipt Date: 20110502
  Transmission Date: 20111010
  Serious: Yes (Other)
  Sender: FDA-Public Use
  Company Number: US-ROCHE-732041

PATIENT
  Sex: Female
  Weight: 39.5 kg

DRUGS (2)
  1. ACCUTANE [Suspect]
     Route: 048
     Dates: start: 20001001, end: 20010101
  2. ACCUTANE [Suspect]
     Indication: ACNE
     Route: 048
     Dates: start: 20000915

REACTIONS (1)
  - IRRITABLE BOWEL SYNDROME [None]
